FAERS Safety Report 13281733 (Version 1)
Quarter: 2017Q1

REPORT INFORMATION
  Report Type: Spontaneous
  Country: US (occurrence: US)
  Receive Date: 20170228
  Receipt Date: 20170228
  Transmission Date: 20170428
  Serious: No
  Sender: FDA-Public Use
  Company Number: None

PATIENT
  Age: 69 Year
  Sex: Male

DRUGS (1)
  1. REPATHA [Suspect]
     Active Substance: EVOLOCUMAB

REACTIONS (5)
  - Muscle spasms [None]
  - Rhinorrhoea [None]
  - Myalgia [None]
  - Back pain [None]
  - Nasopharyngitis [None]

NARRATIVE: CASE EVENT DATE: 20170228
